FAERS Safety Report 19203301 (Version 1)
Quarter: 2021Q2

REPORT INFORMATION
  Report Type: Report from Study
  Country: EG (occurrence: EG)
  Receive Date: 20210430
  Receipt Date: 20210430
  Transmission Date: 20210717
  Serious: Yes (Other)
  Sender: FDA-Public Use
  Company Number: NVSC2021EG091526

PATIENT
  Age: 57 Year
  Sex: Female

DRUGS (9)
  1. FASLODEX [Concomitant]
     Active Substance: FULVESTRANT
     Indication: PRODUCT USED FOR UNKNOWN INDICATION
     Dosage: 2 DF, QD
     Route: 065
  2. AFINITOR [Suspect]
     Active Substance: EVEROLIMUS
     Indication: BREAST CANCER METASTATIC
     Dosage: UNK
     Route: 048
     Dates: start: 202011, end: 20210331
  3. AROMASIN [Concomitant]
     Active Substance: EXEMESTANE
     Indication: PRODUCT USED FOR UNKNOWN INDICATION
     Dosage: 1 DF, QD
     Route: 048
     Dates: start: 2013, end: 2017
  4. FASLODEX [Concomitant]
     Active Substance: FULVESTRANT
     Dosage: 2 DF, Q2W
     Route: 065
  5. FASLODEX [Concomitant]
     Active Substance: FULVESTRANT
     Dosage: 2 DF/21 DAYS
     Route: 065
  6. DIAMICRON MR [Concomitant]
     Active Substance: GLICLAZIDE
     Indication: PRODUCT USED FOR UNKNOWN INDICATION
     Dosage: 1 DF, QD (IN MORNING)
     Route: 065
  7. FASLODEX [Concomitant]
     Active Substance: FULVESTRANT
     Dosage: 2 DF, QW
     Route: 065
  8. AROMASIN [Concomitant]
     Active Substance: EXEMESTANE
     Dosage: 1 DF, QD
     Route: 065
     Dates: start: 20201207
  9. JANUMET [Concomitant]
     Active Substance: METFORMIN HYDROCHLORIDE\SITAGLIPTIN PHOSPHATE
     Indication: PRODUCT USED FOR UNKNOWN INDICATION
     Dosage: 1 DF, QD (AFTER DINNER)
     Route: 065

REACTIONS (8)
  - Pain [Recovered/Resolved]
  - Diarrhoea [Recovered/Resolved]
  - Off label use [Recovered/Resolved]
  - Inflammation [Recovered/Resolved]
  - Drug intolerance [Not Recovered/Not Resolved]
  - Blood glucose increased [Recovered/Resolved]
  - Metastases to lymph nodes [Not Recovered/Not Resolved]
  - Metastases to lung [Not Recovered/Not Resolved]

NARRATIVE: CASE EVENT DATE: 202010
